FAERS Safety Report 12949796 (Version 1)
Quarter: 2016Q4

REPORT INFORMATION
  Report Type: Report from Study
  Country: CO (occurrence: CO)
  Receive Date: 20161117
  Receipt Date: 20161117
  Transmission Date: 20170207
  Serious: Yes (Hospitalization)
  Sender: FDA-Public Use
  Company Number: PHHY2016CO019594

PATIENT
  Age: 55 Year
  Sex: Male
  Weight: 87 kg

DRUGS (2)
  1. ENALAPRIL [Concomitant]
     Active Substance: ENALAPRIL
     Indication: TENSION
     Dosage: 20 MG, QD
     Route: 065
  2. REVOLADE [Suspect]
     Active Substance: ELTROMBOPAG
     Indication: IMMUNE THROMBOCYTOPENIC PURPURA
     Dosage: 50 MG, QD
     Route: 048
     Dates: start: 20160128

REACTIONS (12)
  - Headache [Unknown]
  - Influenza [Unknown]
  - Weight decreased [Unknown]
  - Platelet count decreased [Recovered/Resolved]
  - Fatigue [Unknown]
  - Somnolence [Unknown]
  - Cough [Unknown]
  - Cystitis [Unknown]
  - Suffocation feeling [Unknown]
  - Spinal pain [Unknown]
  - Gastrointestinal pain [Unknown]
  - Platelet count increased [Unknown]

NARRATIVE: CASE EVENT DATE: 20160201
